FAERS Safety Report 24368359 (Version 1)
Quarter: 2024Q3

REPORT INFORMATION
  Report Type: Report from Study
  Country: US (occurrence: US)
  Receive Date: 20240926
  Receipt Date: 20240926
  Transmission Date: 20241017
  Serious: Yes (Hospitalization, Other)
  Sender: ALEXION PHARMACEUTICALS
  Company Number: US-AstraZeneca-CH-00708083A

PATIENT

DRUGS (1)
  1. ULTOMIRIS [Suspect]
     Active Substance: RAVULIZUMAB-CWVZ
     Indication: Product used for unknown indication
     Dosage: UNK
     Route: 065

REACTIONS (9)
  - Vomiting [Unknown]
  - Illness [Unknown]
  - Diarrhoea [Unknown]
  - Meningitis [Unknown]
  - Arthritis [Unknown]
  - Limb discomfort [Unknown]
  - Dyspnoea [Unknown]
  - COVID-19 [Unknown]
  - Wheelchair user [Unknown]
